FAERS Safety Report 5812560-4 (Version None)
Quarter: 2008Q3

REPORT INFORMATION
  Report Type: 
  Country: None (occurrence: None)
  Receive Date: 20080717
  Receipt Date: 20080714
  Transmission Date: 20090109
  Serious: Yes (Death, Other)
  Sender: FDA-Public Use
  Company Number: PHEH2008US06232

PATIENT
  Sex: Male
  Weight: 58.957 kg

DRUGS (7)
  1. ZOMETA [Suspect]
     Indication: METASTASES TO BONE
     Dosage: 4 MG, MONTHLY
     Route: 042
     Dates: start: 20070418, end: 20080116
  2. ALBUTEROL [Concomitant]
     Indication: CHRONIC OBSTRUCTIVE PULMONARY DISEASE
     Dosage: 2 PUFFS, QID
  3. COMBIVENT [Concomitant]
     Indication: CHRONIC OBSTRUCTIVE PULMONARY DISEASE
     Dosage: 2 PUFFS, Q4H
  4. ASPIRIN [Concomitant]
     Indication: CARDIAC DISORDER
     Dosage: 81 MG, QD
  5. DOCUSATE [Concomitant]
     Dosage: 100 MG, TID
  6. SIMVASTATIN [Concomitant]
     Dosage: 20 MG, QD
  7. MEGACE [Concomitant]
     Indication: DECREASED APPETITE
     Dosage: 5 ML, QD

REACTIONS (3)
  - CHRONIC OBSTRUCTIVE PULMONARY DISEASE [None]
  - METASTASES TO SPINE [None]
  - PROSTATE CANCER METASTATIC [None]
